FAERS Safety Report 8109630 (Version 3)
Quarter: 2017Q3

REPORT INFORMATION
  Report Type: Spontaneous
  Country: US (occurrence: US)
  Receive Date: 20110826
  Receipt Date: 20170808
  Transmission Date: 20171128
  Serious: Yes (Hospitalization, Other)
  Sender: FDA-Public Use
  Company Number: US-ROCHE-798891

PATIENT
  Age: 75 Year
  Sex: Male

DRUGS (8)
  1. BONIVA [Suspect]
     Active Substance: IBANDRONATE SODIUM
     Indication: OSTEOPOROSIS
     Route: 048
  2. VITAMIN D [Concomitant]
     Active Substance: CHOLECALCIFEROL
     Indication: OSTEOPOROSIS
  3. STRONTIUM [Concomitant]
     Active Substance: STRONTIUM
     Indication: OSTEOPOROSIS
  4. ACETAMINOFEN [Concomitant]
     Active Substance: ACETAMINOPHEN
     Indication: BACK PAIN
     Route: 065
  5. PREDNISONE. [Concomitant]
     Active Substance: PREDNISONE
     Indication: GASTROINTESTINAL DISORDER
  6. BONIVA [Suspect]
     Active Substance: IBANDRONATE SODIUM
     Route: 065
  7. CALCIUM [Concomitant]
     Active Substance: CALCIUM
     Indication: OSTEOPOROSIS
     Route: 065
  8. HYDROCORTISON [Concomitant]
     Active Substance: HYDROCORTISONE
     Indication: BACK PAIN
     Route: 065

REACTIONS (3)
  - Fracture [Unknown]
  - Compression fracture [Unknown]
  - Feeling jittery [Unknown]

NARRATIVE: CASE EVENT DATE: 20110611
